FAERS Safety Report 4632969-4 (Version None)
Quarter: 2005Q2

REPORT INFORMATION
  Report Type: 
  Country: None (occurrence: None)
  Receive Date: 20050412
  Receipt Date: 20050406
  Transmission Date: 20051028
  Serious: Yes (Hospitalization)
  Sender: FDA-Public Use
  Company Number: SE-MERCK-0504SWE00016

PATIENT
  Age: 82 Year
  Sex: Female

DRUGS (3)
  1. VIOXX [Suspect]
     Indication: POST PROCEDURAL PAIN
     Route: 048
     Dates: start: 20031101
  2. ATENOLOL [Concomitant]
     Route: 065
  3. AMLODIPINE BESYLATE [Concomitant]
     Route: 065

REACTIONS (4)
  - CEREBROVASCULAR ACCIDENT [None]
  - DIZZINESS [None]
  - HALLUCINATION [None]
  - NAUSEA [None]
